FAERS Safety Report 6410846-6 (Version None)
Quarter: 2009Q4

REPORT INFORMATION
  Report Type: 
  Country: None (occurrence: None)
  Receive Date: 20091022
  Receipt Date: 20091009
  Transmission Date: 20100525
  Serious: Yes (Hospitalization)
  Sender: FDA-Public Use
  Company Number: PHHY2009GB38988

PATIENT
  Sex: Male

DRUGS (7)
  1. CLOZARIL [Suspect]
     Indication: SCHIZOPHRENIA
     Dosage: UNK
     Dates: start: 19930121
  2. LANSOPRAZOLE [Concomitant]
  3. VALPROATE SODIUM [Concomitant]
  4. PREDNISOLONE [Concomitant]
  5. LEVOTHYROXINE SODIUM [Concomitant]
  6. ABILIFY [Concomitant]
  7. PHOSPHATE [Concomitant]

REACTIONS (10)
  - COUGH [None]
  - DIARRHOEA [None]
  - GASTROENTERITIS [None]
  - HAEMOGLOBIN DECREASED [None]
  - INFLUENZA [None]
  - NASOPHARYNGITIS [None]
  - RENAL FAILURE [None]
  - VOMITING [None]
  - WEIGHT DECREASED [None]
  - WHITE BLOOD CELL COUNT DECREASED [None]
